FAERS Safety Report 4820872-6 (Version None)
Quarter: 2005Q4

REPORT INFORMATION
  Report Type: 
  Country: None (occurrence: None)
  Receive Date: 20051103
  Receipt Date: 20051101
  Transmission Date: 20060501
  Serious: Yes (Hospitalization, Disabling)
  Sender: FDA-Public Use
  Company Number: TCI2005A03006

PATIENT
  Age: 78 Year
  Sex: Male

DRUGS (5)
  1. LEUPROLIDE ACETATE [Suspect]
     Indication: PROSTATE CANCER
     Dosage: 11.25 MG (11.25 MG, 1 IN 12 WK)
     Route: 058
     Dates: start: 20040508, end: 20040731
  2. LEUPROLIDE ACETATE [Suspect]
     Indication: PROSTATE CANCER
     Dosage: SEE IMAGE
     Route: 058
     Dates: start: 20040220, end: 20040403
  3. LEUPROLIDE ACETATE [Suspect]
     Indication: PROSTATE CANCER
     Dosage: SEE IMAGE
     Route: 058
     Dates: start: 20050402, end: 20050402
  4. NITRODERM [Concomitant]
  5. PROSTATE (CHLORMADINONE ACETATE) [Concomitant]

REACTIONS (20)
  - ALANINE AMINOTRANSFERASE INCREASED [None]
  - ANTINUCLEAR ANTIBODY POSITIVE [None]
  - ASPARTATE AMINOTRANSFERASE INCREASED [None]
  - B-LYMPHOCYTE COUNT INCREASED [None]
  - BLOOD ALKALINE PHOSPHATASE INCREASED [None]
  - CARDIAC DISORDER [None]
  - CARDIAC FAILURE CONGESTIVE [None]
  - CHROMOSOME BANDING [None]
  - CONDITION AGGRAVATED [None]
  - DEHYDRATION [None]
  - ERYTHROBLAST COUNT INCREASED [None]
  - GAMMA-GLUTAMYLTRANSFERASE INCREASED [None]
  - GRANULOCYTE COUNT INCREASED [None]
  - HAEMOLYTIC ANAEMIA [None]
  - MARROW HYPERPLASIA [None]
  - MEGAKARYOCYTES INCREASED [None]
  - MYELODYSPLASTIC SYNDROME [None]
  - PANCREATITIS CHRONIC [None]
  - PROSTATIC SPECIFIC ANTIGEN INCREASED [None]
  - PYREXIA [None]
